FAERS Safety Report 25059245 (Version 2)
Quarter: 2025Q2

REPORT INFORMATION
  Report Type: Spontaneous
  Country: US (occurrence: US)
  Receive Date: 20250310
  Receipt Date: 20250430
  Transmission Date: 20250717
  Serious: Yes (Other)
  Sender: PFIZER
  Company Number: US-PFIZER INC-PV202500028015

PATIENT
  Age: 37 Year
  Sex: Female

DRUGS (5)
  1. SOMAVERT [Suspect]
     Active Substance: PEGVISOMANT
     Indication: Acromegaly
     Dosage: 10 MG, DAILY
     Dates: start: 2011
  2. SOMAVERT [Suspect]
     Active Substance: PEGVISOMANT
     Dosage: 15 MG, DAILY
  3. SOMAVERT [Suspect]
     Active Substance: PEGVISOMANT
     Dosage: 20 MG, DAILY
  4. SOMAVERT [Suspect]
     Active Substance: PEGVISOMANT
     Dosage: 30 MG, DAILY
  5. SOMAVERT [Suspect]
     Active Substance: PEGVISOMANT
     Dosage: 40 MG (2 - 20MG VIALS) INJECT SUBCUTANEOUSLY DAILY
     Route: 058
     Dates: start: 2021

REACTIONS (4)
  - Hypothyroidism [Not Recovered/Not Resolved]
  - Insulin-like growth factor increased [Recovered/Resolved]
  - Weight increased [Not Recovered/Not Resolved]
  - Asthenia [Not Recovered/Not Resolved]
